FAERS Safety Report 6153488-2 (Version None)
Quarter: 2009Q2

REPORT INFORMATION
  Report Type: 
  Country: None (occurrence: None)
  Receive Date: 20090413
  Receipt Date: 20081120
  Transmission Date: 20091009
  Serious: No
  Sender: FDA-Public Use
  Company Number: PR-ABBOTT-08P-163-0489307-00

PATIENT
  Sex: Female
  Weight: 97.61 kg

DRUGS (2)
  1. LUPRON [Suspect]
     Indication: IN VITRO FERTILISATION
     Dosage: MULTI DOSE VIAL
     Route: 058
     Dates: start: 20081115
  2. CONLUNETT [Concomitant]
     Indication: IN VITRO FERTILISATION
     Route: 048
     Dates: start: 20081102

REACTIONS (5)
  - DIARRHOEA [None]
  - HEADACHE [None]
  - HOT FLUSH [None]
  - NAUSEA [None]
  - VOMITING [None]
